FAERS Safety Report 25958566 (Version 3)
Quarter: 2025Q4

REPORT INFORMATION
  Report Type: Report from Study
  Country: CL (occurrence: CL)
  Receive Date: 20251024
  Receipt Date: 20251222
  Transmission Date: 20260117
  Serious: No
  Sender: PFIZER
  Company Number: CL-PFIZER INC-PV202500123339

PATIENT
  Age: 46 Year
  Sex: Male

DRUGS (1)
  1. GENOTROPIN [Suspect]
     Active Substance: SOMATROPIN
     Dosage: UNK

REACTIONS (2)
  - Device defective [Unknown]
  - Device leakage [Unknown]
